FAERS Safety Report 20216808 (Version 1)
Quarter: 2021Q4

REPORT INFORMATION
  Report Type: Spontaneous
  Country: GB (occurrence: GB)
  Receive Date: 20211222
  Receipt Date: 20211222
  Transmission Date: 20220303
  Serious: Yes (Other)
  Sender: FDA-Public Use
  Company Number: GB-AVEO ONCOLOGY-2021-AVEO-GB003726

PATIENT

DRUGS (9)
  1. FOTIVDA [Suspect]
     Active Substance: TIVOZANIB HYDROCHLORIDE
     Indication: Renal cancer metastatic
     Dosage: 1340 MCG 4 WEEKS
     Route: 048
     Dates: start: 20210603, end: 2021
  2. FOTIVDA [Suspect]
     Active Substance: TIVOZANIB HYDROCHLORIDE
     Dosage: DOES REDUCED TO 890 MCG 4 WEEKS
     Route: 048
     Dates: start: 2021, end: 2021
  3. FOTIVDA [Suspect]
     Active Substance: TIVOZANIB HYDROCHLORIDE
     Dosage: BACK ON FULL DOSE 1340 MCG
     Route: 048
     Dates: start: 2021
  4. APIXABAN [Concomitant]
     Active Substance: APIXABAN
  5. FUROSEMIDE [Concomitant]
     Active Substance: FUROSEMIDE
  6. MAGNESIUM [Concomitant]
     Active Substance: MAGNESIUM
  7. VITAMIN B3 [Concomitant]
     Active Substance: NIACIN
  8. ZINC [Concomitant]
     Active Substance: ZINC
  9. MENAQUINONE 6 [Concomitant]
     Active Substance: MENAQUINONE 6

REACTIONS (2)
  - Adverse drug reaction [Recovered/Resolved]
  - Adverse drug reaction [Not Recovered/Not Resolved]

NARRATIVE: CASE EVENT DATE: 20210812
